FAERS Safety Report 6916850-3 (Version None)
Quarter: 2010Q3

REPORT INFORMATION
  Report Type: 
  Country: None (occurrence: None)
  Receive Date: 20100809
  Receipt Date: 20100809
  Transmission Date: 20110219
  Serious: Yes (Other)
  Sender: FDA-Public Use
  Company Number: None

PATIENT
  Age: 52 Year
  Weight: 49.8957 kg

DRUGS (1)
  1. PHENERGAN [Suspect]
     Indication: MIGRAINE
     Dosage: 3 TIMES IM
     Route: 030
     Dates: start: 20050114, end: 20050601

REACTIONS (9)
  - CYST [None]
  - DYSPNOEA [None]
  - FALL [None]
  - IMMEDIATE POST-INJECTION REACTION [None]
  - MONOPLEGIA [None]
  - PAIN [None]
  - PAIN IN EXTREMITY [None]
  - URTICARIA [None]
  - WEIGHT BEARING DIFFICULTY [None]
